FAERS Safety Report 9711887 (Version 1)
Quarter: 2013Q4

REPORT INFORMATION
  Report Type: Spontaneous
  Country: US (occurrence: US)
  Receive Date: 20131126
  Receipt Date: 20131126
  Transmission Date: 20140711
  Serious: No
  Sender: FDA-Public Use
  Company Number: US-BRISTOL-MYERS SQUIBB COMPANY-18827642

PATIENT
  Age: 72 Year
  Sex: Male
  Weight: 100.68 kg

DRUGS (10)
  1. BYDUREON [Suspect]
     Indication: TYPE 2 DIABETES MELLITUS
     Route: 058
     Dates: start: 20130421
  2. GLIMEPIRIDE [Suspect]
     Route: 048
     Dates: end: 20130420
  3. LANTUS [Suspect]
     Dates: end: 20130420
  4. CRESTOR [Concomitant]
  5. CILOSTAZOL [Concomitant]
  6. CLOPIDOGREL BISULFATE [Concomitant]
  7. FUROSEMIDE [Concomitant]
  8. TIMOLOL [Concomitant]
     Dosage: EYE DROPS IN EACH EYE TWICE DAILY
  9. METOPROLOL [Concomitant]
  10. VITAMINS [Concomitant]

REACTIONS (1)
  - Blood glucose increased [Not Recovered/Not Resolved]
